FAERS Safety Report 23192045 (Version 4)
Quarter: 2024Q1

REPORT INFORMATION
  Report Type: Other
  Country: US (occurrence: US)
  Receive Date: 20231116
  Receipt Date: 20240301
  Transmission Date: 20240410
  Serious: No
  Sender: FDA-Public Use
  Company Number: US-TRAVERE-2023TVT00650

PATIENT
  Age: 28 Year
  Sex: Male

DRUGS (10)
  1. FILSPARI [Suspect]
     Active Substance: SPARSENTAN
     Indication: Proteinuria
     Dosage: 200 MG
     Route: 048
     Dates: start: 20231003
  2. FILSPARI [Suspect]
     Active Substance: SPARSENTAN
     Indication: IgA nephropathy
     Dosage: 1 TABLET BY MOUTH
     Route: 048
     Dates: start: 202310
  3. PRILOSEC OTC 20 MG TABLET DR [Concomitant]
  4. CORTISONE 1 % CREAM(GM) [Concomitant]
  5. ALLEGRA ALLERGY [Concomitant]
     Active Substance: FEXOFENADINE HYDROCHLORIDE
  6. ATORVASTATIN CALCIUM 10 MG TABLET [Concomitant]
  7. RAMIPRIL 5 MG CAPSULE [Concomitant]
  8. TYLENOL [Concomitant]
     Active Substance: ACETAMINOPHEN
  9. IMODIUM [Concomitant]
     Active Substance: LOPERAMIDE HYDROCHLORIDE
  10. JARDIANCE [Concomitant]
     Active Substance: EMPAGLIFLOZIN

REACTIONS (10)
  - Dyspepsia [None]
  - Diarrhoea [Unknown]
  - Headache [Recovering/Resolving]
  - Dizziness [Unknown]
  - Dry mouth [Recovering/Resolving]
  - Chills [Recovering/Resolving]
  - Fatigue [Recovering/Resolving]
  - Blood pressure increased [Unknown]
  - Nerve compression [Recovering/Resolving]
  - Ear infection [Recovered/Resolved]

NARRATIVE: CASE EVENT DATE: 20231003
